FAERS Safety Report 5843420-0 (Version None)
Quarter: 2008Q3

REPORT INFORMATION
  Report Type: 
  Country: None (occurrence: None)
  Receive Date: 20080813
  Receipt Date: 20080808
  Transmission Date: 20090109
  Serious: Yes (Hospitalization)
  Sender: FDA-Public Use
  Company Number: B0532469A

PATIENT
  Age: 77 Year
  Sex: Male

DRUGS (3)
  1. ARIXTRA [Suspect]
     Indication: THROMBOSIS PROPHYLAXIS
     Dosage: 2.5MG PER DAY
     Route: 058
     Dates: start: 20080718, end: 20080718
  2. ASPIRIN [Concomitant]
     Indication: MYOCARDIAL INFARCTION
     Dosage: 100MG PER DAY
     Route: 048
     Dates: start: 20080718, end: 20080718
  3. PEON [Concomitant]
     Indication: OSTEOARTHRITIS
     Dosage: 80MG THREE TIMES PER DAY
     Route: 048
     Dates: start: 20080716, end: 20080718

REACTIONS (1)
  - DUODENAL ULCER [None]
